FAERS Safety Report 9445101 (Version 2)
Quarter: 2019Q4

REPORT INFORMATION
  Report Type: Report from Study
  Country: MW (occurrence: MW)
  Receive Date: 20130807
  Receipt Date: 20191216
  Transmission Date: 20200122
  Serious: Yes (Death, Hospitalization, Disabling, Other)
  Sender: FDA-Public Use
  Company Number: MW-B.I. PHARMACEUTICALS,INC./RIDGEFIELD-2013-BI-23588GD

PATIENT
  Age: 25 Year
  Sex: Male

DRUGS (4)
  1. VIRAMUNE [Suspect]
     Active Substance: NEVIRAPINE
     Indication: HIV INFECTION
     Route: 065
  2. LAMIVUDINE. [Concomitant]
     Active Substance: LAMIVUDINE
     Indication: HIV INFECTION
     Route: 065
  3. COTRIMOXAZOLE [Suspect]
     Active Substance: SULFAMETHOXAZOLE\TRIMETHOPRIM
     Indication: PROPHYLAXIS
     Route: 065
     Dates: start: 201208
  4. STAVUDINE. [Concomitant]
     Active Substance: STAVUDINE
     Indication: HIV INFECTION
     Route: 065

REACTIONS (14)
  - Blindness [Unknown]
  - Eye disorder [Unknown]
  - Corneal thinning [Unknown]
  - Endophthalmitis [Unknown]
  - Toxic epidermal necrolysis [Fatal]
  - Symblepharon [Unknown]
  - Conjunctivitis [Unknown]
  - Conjunctival oedema [Unknown]
  - Eye inflammation [Unknown]
  - Stevens-Johnson syndrome [Fatal]
  - Conjunctivalisation [Unknown]
  - Sepsis [Unknown]
  - Blepharitis [Unknown]
  - Sensation of foreign body [Unknown]
